FAERS Safety Report 16841731 (Version 5)
Quarter: 2020Q2

REPORT INFORMATION
  Report Type: Spontaneous
  Country: AT (occurrence: AT)
  Receive Date: 20190923
  Receipt Date: 20200624
  Transmission Date: 20200713
  Serious: Yes (Hospitalization, Other)
  Sender: FDA-Public Use
  Company Number: PHHY2019AT219122

PATIENT
  Sex: Male

DRUGS (10)
  1. PREDNISONE. [Suspect]
     Active Substance: PREDNISONE
     Indication: IMMUNOSUPPRESSANT DRUG THERAPY
  2. PREDNISOLONE. [Suspect]
     Active Substance: PREDNISOLONE
     Indication: HAEMOPHAGOCYTIC LYMPHOHISTIOCYTOSIS
     Dosage: UNK, STARTED AS A HIGH-DOSE OF 250-500 MG TOGETHER WITH THE START OF ANAKINRA TREATMENT FOLLOWED BY
     Route: 065
  3. GANCICLOVIR. [Suspect]
     Active Substance: GANCICLOVIR
     Indication: ANTIVIRAL TREATMENT
  4. ANAKINRA [Suspect]
     Active Substance: ANAKINRA
     Indication: HAEMOPHAGOCYTIC LYMPHOHISTIOCYTOSIS
     Dosage: 100 MG (PREFILLED 100-MG SYRINGES FOR SUBCUTANEOUS INJECTION)
     Route: 042
  5. RITUXIMAB. [Suspect]
     Active Substance: RITUXIMAB
     Indication: ANTISYNTHETASE SYNDROME
     Dosage: UNK (ON DAY 8 AND 15 POST HLH DIAGNOSIS)
     Route: 065
  6. IMMUNOGLOBULIN HUMAN NORMAL [Suspect]
     Active Substance: HUMAN IMMUNOGLOBULIN G
     Indication: HAEMOPHAGOCYTIC LYMPHOHISTIOCYTOSIS
     Dosage: UNK (0.5-1 G/KG FOR 3-6 DAYS.)
     Route: 042
  7. CYCLOPHOSPHAMIDE. [Suspect]
     Active Substance: CYCLOPHOSPHAMIDE
     Indication: PRODUCT USED FOR UNKNOWN INDICATION
     Dosage: UNK (ON DAY 14 POST HLH DIAGNOSIS)
     Route: 065
  8. PREDNISONE. [Suspect]
     Active Substance: PREDNISONE
     Indication: HAEMOPHAGOCYTIC LYMPHOHISTIOCYTOSIS
     Dosage: LONG TERM TREATMENT OF LOWER DOSE OF PREDNSIONE
     Route: 065
  9. GANCICLOVIR. [Suspect]
     Active Substance: GANCICLOVIR
     Indication: CYTOMEGALOVIRUS INFECTION
     Dosage: UNK
     Route: 065
  10. KINERET [Suspect]
     Active Substance: ANAKINRA
     Indication: HAEMOPHAGOCYTIC LYMPHOHISTIOCYTOSIS
     Dosage: 18 MG/KG, QD (100-200 MG THREE TIMES DAILY)
     Route: 058

REACTIONS (16)
  - Disease progression [Unknown]
  - Lung infiltration [Unknown]
  - Off label use [Unknown]
  - Respiratory failure [Recovering/Resolving]
  - Sepsis [Unknown]
  - Vascular device infection [Unknown]
  - Clostridium difficile colitis [Unknown]
  - Cytomegalovirus infection reactivation [Unknown]
  - Multiple organ dysfunction syndrome [Recovering/Resolving]
  - Candida infection [Unknown]
  - Cytopenia [Unknown]
  - Restrictive pulmonary disease [Unknown]
  - Condition aggravated [Not Recovered/Not Resolved]
  - Haemophagocytic lymphohistiocytosis [Unknown]
  - Hepatic function abnormal [Recovering/Resolving]
  - Product use in unapproved indication [Unknown]
